FAERS Safety Report 16301505 (Version 1)
Quarter: 2019Q2

REPORT INFORMATION
  Report Type: Spontaneous
  Country: US (occurrence: US)
  Receive Date: 20190511
  Receipt Date: 20190511
  Transmission Date: 20190711
  Serious: No
  Sender: FDA-Public Use
  Company Number: US-TEVA-2019-US-1043000

PATIENT
  Sex: Female

DRUGS (1)
  1. CARBIDOPA AND LEVODOPA TEVA TABLETS [Suspect]
     Active Substance: CARBIDOPA\LEVODOPA
     Indication: PARKINSON^S DISEASE
     Dosage: DOSE STRENGTH:  CARBIDOPA: 25 MG/LEVODOPA: 100 MG
     Route: 065

REACTIONS (4)
  - Nausea [Unknown]
  - Therapeutic product effect decreased [Unknown]
  - Product substitution issue [Unknown]
  - Product use issue [Unknown]

NARRATIVE: CASE EVENT DATE: 20190329
